FAERS Safety Report 10376204 (Version 3)
Quarter: 2015Q2

REPORT INFORMATION
  Report Type: Spontaneous
  Country: US (occurrence: US)
  Receive Date: 20140811
  Receipt Date: 20150429
  Transmission Date: 20150821
  Serious: Yes (Death, Other)
  Sender: FDA-Public Use
  Company Number: US-ASTRAZENECA-2014SE21247

PATIENT
  Age: 45 Year
  Sex: Female
  Weight: 49.9 kg

DRUGS (2)
  1. ARIMIDEX [Suspect]
     Active Substance: ANASTROZOLE
     Indication: BREAST CANCER FEMALE
     Route: 048
     Dates: start: 201301
  2. THYROXIN [Concomitant]
     Active Substance: LEVOTHYROXINE
     Indication: THYROID DISORDER
     Dosage: 50MCG DAILY
     Route: 048
     Dates: start: 201402

REACTIONS (8)
  - Arthralgia [Recovered/Resolved with Sequelae]
  - Back disorder [Not Recovered/Not Resolved]
  - Thyroid disorder [Recovered/Resolved]
  - Gait disturbance [Not Recovered/Not Resolved]
  - Breast cancer metastatic [Fatal]
  - Muscular weakness [Not Recovered/Not Resolved]
  - Pain in extremity [Not Recovered/Not Resolved]
  - Impaired healing [Not Recovered/Not Resolved]

NARRATIVE: CASE EVENT DATE: 201301
